FAERS Safety Report 23577942 (Version 5)
Quarter: 2024Q2

REPORT INFORMATION
  Report Type: Spontaneous
  Country: CN (occurrence: CN)
  Receive Date: 20240228
  Receipt Date: 20240423
  Transmission Date: 20240715
  Serious: Yes (Hospitalization, Other)
  Sender: FDA-Public Use
  Company Number: CN-NOVOPROD-1180554

PATIENT
  Age: 66 Year
  Sex: Female
  Weight: 45 kg

DRUGS (2)
  1. INSULIN ASPART [Suspect]
     Active Substance: INSULIN ASPART
     Indication: Type 2 diabetes mellitus
     Dosage: 28 IU, QD (14 U IN THE MORNING AND 14 U IN THE EVENING)
  2. INSULIN ASPART [Suspect]
     Active Substance: INSULIN ASPART
     Dosage: 30 IU, QD (14 IU IN THE MORNING AND 16 IU IN THE EVENING)

REACTIONS (6)
  - Blood glucose increased [Unknown]
  - Cataract operation [Unknown]
  - Cataract operation [Unknown]
  - Eye disorder [Unknown]
  - Device issue [Unknown]
  - Hypoglycaemia [Recovered/Resolved]

NARRATIVE: CASE EVENT DATE: 20240221
